FAERS Safety Report 6936897-0 (Version None)
Quarter: 2010Q3

REPORT INFORMATION
  Report Type: 
  Country: None (occurrence: None)
  Receive Date: 20100823
  Receipt Date: 20100819
  Transmission Date: 20110219
  Serious: Yes (Hospitalization)
  Sender: FDA-Public Use
  Company Number: FR-WYE-G06563010

PATIENT
  Age: 75 Year
  Sex: Female

DRUGS (9)
  1. ADVIL LIQUI-GELS [Suspect]
     Route: 048
     Dates: end: 20100720
  2. PRIMPERAN TAB [Concomitant]
     Dosage: UNKNOWN
     Route: 048
  3. SOLUPRED [Concomitant]
     Indication: BREAST CANCER METASTATIC
     Dosage: UNKNOWN
     Route: 048
  4. ZOLOFT [Concomitant]
     Dosage: UNKNOWN
     Route: 048
  5. LEVOTHYROXINE SODIUM [Concomitant]
     Dosage: UNKNOWN
     Route: 048
  6. KERLONE [Concomitant]
     Dosage: UNKNOWN
     Route: 048
  7. LANZOR [Concomitant]
     Dosage: UNKNOWN
     Route: 048
  8. XELODA [Concomitant]
     Indication: BREAST CANCER METASTATIC
     Dosage: UNKNOWN
     Route: 048
  9. TRIATEC [Concomitant]
     Dosage: UNKNOWN
     Route: 048

REACTIONS (1)
  - COLITIS ISCHAEMIC [None]
